FAERS Safety Report 4956991-3 (Version None)
Quarter: 2006Q1

REPORT INFORMATION
  Report Type: 
  Country: None (occurrence: None)
  Receive Date: 20060127
  Receipt Date: 20041217
  Transmission Date: 20060701
  Serious: Yes (Other)
  Sender: FDA-Public Use
  Company Number: 04-12-1760

PATIENT
  Age: 29 Year
  Sex: Female

DRUGS (1)
  1. CLOZAPINE [Suspect]
     Dosage: 100-300MG, QD, ORAL
     Route: 048
     Dates: start: 20040801, end: 20041216

REACTIONS (1)
  - AGRANULOCYTOSIS [None]
